FAERS Safety Report 12386179 (Version 1)
Quarter: 2016Q2

REPORT INFORMATION
  Report Type: Spontaneous
  Country: JP (occurrence: JP)
  Receive Date: 20160519
  Receipt Date: 20160519
  Transmission Date: 20160815
  Serious: Yes (Hospitalization, Other)
  Sender: FDA-Public Use
  Company Number: PHJP2001JP000730

PATIENT
  Age: 61 Year
  Sex: Male

DRUGS (1)
  1. SANDIMMUN CAPSULE [Suspect]
     Active Substance: CYCLOSPORINE
     Indication: PRODUCT USED FOR UNKNOWN INDICATION
     Route: 065

REACTIONS (2)
  - Renal infarct [Unknown]
  - Osteonecrosis [Unknown]
